FAERS Safety Report 21861682 (Version 1)
Quarter: 2023Q1

REPORT INFORMATION
  Report Type: Spontaneous
  Country: CA (occurrence: CA)
  Receive Date: 20230113
  Receipt Date: 20230113
  Transmission Date: 20230418
  Serious: Yes (Hospitalization, Disabling, Other)
  Sender: FDA-Public Use
  Company Number: CA-ELI_LILLY_AND_COMPANY-CA202301001971

PATIENT
  Sex: Male

DRUGS (3)
  1. HUMALOG [Suspect]
     Active Substance: INSULIN LISPRO
     Indication: Diabetes mellitus
     Dosage: 2 MG, EACH MORNING
     Route: 058
     Dates: start: 1993
  2. HUMALOG [Suspect]
     Active Substance: INSULIN LISPRO
     Dosage: 2 MG, DAILY (LUNCH)
     Route: 058
     Dates: start: 1993
  3. HUMALOG [Suspect]
     Active Substance: INSULIN LISPRO
     Dosage: 6 MG, EACH EVENING
     Route: 058
     Dates: start: 1993

REACTIONS (4)
  - Blindness [Unknown]
  - Retinal artery occlusion [Unknown]
  - Glaucoma [Recovered/Resolved]
  - Cataract [Unknown]

NARRATIVE: CASE EVENT DATE: 20220101
